FAERS Safety Report 24921166 (Version 1)
Quarter: 2025Q1

REPORT INFORMATION
  Report Type: Spontaneous
  Country: IQ (occurrence: IQ)
  Receive Date: 20250204
  Receipt Date: 20250204
  Transmission Date: 20250409
  Serious: No
  Sender: ALKEM
  Company Number: IQ-ALKEM LABORATORIES LIMITED-IQ-ALKEM-2024-17945

PATIENT
  Age: 65 Year
  Sex: Female

DRUGS (5)
  1. GABAPENTIN [Suspect]
     Active Substance: GABAPENTIN
     Indication: Pain
     Dosage: 100 MILLIGRAM, QD
     Route: 065
  2. TRISODIUM CYTIDINE 5^-DIPHOSPHATE\URIDINE 5^-TRIPHOSPHATE SODIUM [Suspect]
     Active Substance: TRISODIUM CYTIDINE 5^-DIPHOSPHATE\URIDINE 5^-TRIPHOSPHATE SODIUM
     Indication: Product used for unknown indication
     Dosage: 5 MILLIGRAM, QD
     Route: 065
  3. METFORMIN [Concomitant]
     Active Substance: METFORMIN HYDROCHLORIDE
     Indication: Type 2 diabetes mellitus
     Route: 065
  4. PROPRANOLOL [Concomitant]
     Active Substance: PROPRANOLOL HYDROCHLORIDE
     Indication: Hypertension
  5. PROPRANOLOL [Concomitant]
     Active Substance: PROPRANOLOL HYDROCHLORIDE
     Indication: Angina pectoris

REACTIONS (1)
  - Hyperglycaemia [Unknown]
